FAERS Safety Report 17911634 (Version 1)
Quarter: 2020Q2

REPORT INFORMATION
  Report Type: Spontaneous
  Country: US (occurrence: US)
  Receive Date: 20200618
  Receipt Date: 20200618
  Transmission Date: 20200714
  Serious: No
  Sender: FDA-Public Use
  Company Number: US-PFIZER INC-2020235989

PATIENT

DRUGS (1)
  1. ALPRAZOLAM. [Suspect]
     Active Substance: ALPRAZOLAM
     Dosage: UNK

REACTIONS (6)
  - Anxiety [Unknown]
  - Poor quality product administered [Unknown]
  - Panic attack [Unknown]
  - Product taste abnormal [Unknown]
  - Product physical issue [Unknown]
  - Suspected counterfeit product [Unknown]
